FAERS Safety Report 26156266 (Version 1)
Quarter: 2025Q4

REPORT INFORMATION
  Report Type: Spontaneous
  Country: US (occurrence: US)
  Receive Date: 20251215
  Receipt Date: 20251215
  Transmission Date: 20260117
  Serious: No
  Sender: ALCON
  Company Number: US-ALCON LABORATORIES-ALC2025US006490

PATIENT
  Age: 79 Year
  Sex: Female

DRUGS (3)
  1. ACOLTREMON [Suspect]
     Active Substance: ACOLTREMON
     Indication: Product used for unknown indication
     Dosage: INSTILL 1 DROP INTO EACH EYE TWICE A DAY
     Route: 047
     Dates: start: 20251105, end: 20251107
  2. IPRATROPIUM BROMIDE [Concomitant]
     Active Substance: IPRATROPIUM BROMIDE
     Indication: Product used for unknown indication
     Route: 065
  3. TYLENOL [Concomitant]
     Active Substance: ACETAMINOPHEN
     Indication: Product used for unknown indication
     Route: 065

REACTIONS (5)
  - Dizziness [Unknown]
  - Headache [Unknown]
  - Abdominal pain upper [Unknown]
  - Fatigue [Unknown]
  - Eye irritation [Unknown]
